FAERS Safety Report 9171812 (Version 1)
Quarter: 2013Q1

REPORT INFORMATION
  Report Type: Spontaneous
  Country: US (occurrence: None)
  Receive Date: 20130311
  Receipt Date: 20130311
  Transmission Date: 20140127
  Serious: No
  Sender: FDA-Public Use
  Company Number: AEUSA201200540

PATIENT
  Sex: Male

DRUGS (1)
  1. ALBUTEIN [Suspect]
     Indication: MYASTHENIA GRAVIS
     Route: 042

REACTIONS (1)
  - Hypotension [None]
